FAERS Safety Report 5056491-9 (Version None)
Quarter: 2006Q3

REPORT INFORMATION
  Report Type: 
  Country: None (occurrence: None)
  Receive Date: 20060720
  Receipt Date: 20060628
  Transmission Date: 20061208
  Serious: Yes (Death, Hospitalization, Other)
  Sender: FDA-Public Use
  Company Number: PL-BRISTOL-MYERS SQUIBB COMPANY-13427505

PATIENT
  Age: 54 Year
  Sex: Male
  Weight: 102 kg

DRUGS (7)
  1. CISPLATIN [Suspect]
     Indication: NON-SMALL CELL LUNG CANCER
     Route: 042
     Dates: start: 20060613, end: 20060613
  2. GEMCITABINE [Suspect]
     Indication: NON-SMALL CELL LUNG CANCER
     Route: 042
     Dates: start: 20060613, end: 20060613
  3. ACETYLSALICYLIC ACID SRT [Concomitant]
     Route: 048
     Dates: start: 20000406
  4. INSULIN [Concomitant]
     Route: 058
  5. BISOPROLOL FUMARATE [Concomitant]
     Route: 048
  6. TRANDOLAPRIL [Concomitant]
     Route: 048
     Dates: start: 20000406
  7. MONONIT [Concomitant]
     Route: 048
     Dates: start: 20000406

REACTIONS (6)
  - AZOTAEMIA [None]
  - COLITIS ISCHAEMIC [None]
  - FATIGUE [None]
  - MULTI-ORGAN FAILURE [None]
  - PERITONITIS [None]
  - VOMITING [None]
